FAERS Safety Report 8474167-2 (Version None)
Quarter: 2012Q2

REPORT INFORMATION
  Report Type: 
  Country: None (occurrence: None)
  Receive Date: 20120628
  Receipt Date: 20120625
  Transmission Date: 20120825
  Serious: No
  Sender: FDA-Public Use
  Company Number: US-PFIZER INC-2012152068

PATIENT
  Age: 83 Year
  Sex: Female
  Weight: 67.12 kg

DRUGS (3)
  1. TOVIAZ [Suspect]
     Indication: HYPERTONIC BLADDER
     Dosage: 4 MG, 1X/DAY
     Dates: start: 20110201
  2. TOVIAZ [Suspect]
     Dosage: 8 MG,1X/DAY
  3. CARDIZEM [Concomitant]
     Indication: BLOOD PRESSURE ABNORMAL
     Dosage: 240 MG, 1X/DAY

REACTIONS (1)
  - CONSTIPATION [None]
